FAERS Safety Report 5194885-1 (Version None)
Quarter: 2006Q4

REPORT INFORMATION
  Report Type: 
  Country: None (occurrence: None)
  Receive Date: 20061229
  Receipt Date: 20061010
  Transmission Date: 20070319
  Serious: Yes (Hospitalization)
  Sender: FDA-Public Use
  Company Number: US-BRISTOL-MYERS SQUIBB COMPANY-13536537

PATIENT
  Age: 79 Year
  Sex: Male

DRUGS (8)
  1. SPRYCEL [Suspect]
     Indication: CHRONIC MYELOID LEUKAEMIA
     Route: 048
     Dates: start: 20060701, end: 20061008
  2. OXYCODONE HCL [Concomitant]
  3. RANITIDINE [Concomitant]
  4. LACTASE [Concomitant]
  5. METOPROLOL SUCCINATE [Concomitant]
  6. CALCIUM + VITAMIN D [Concomitant]
  7. NITROGLYCERIN [Concomitant]
  8. DOCUSATE [Concomitant]

REACTIONS (1)
  - PANCYTOPENIA [None]
